FAERS Safety Report 6495768-7 (Version None)
Quarter: 2009Q4

REPORT INFORMATION
  Report Type: 
  Country: None (occurrence: None)
  Receive Date: 20091214
  Receipt Date: 20090811
  Transmission Date: 20100525
  Serious: No
  Sender: FDA-Public Use
  Company Number: US-BRISTOL-MYERS SQUIBB COMPANY-14737308

PATIENT
  Age: 55 Year
  Sex: Female
  Weight: 64 kg

DRUGS (4)
  1. ABILIFY [Suspect]
  2. LYRICA [Suspect]
     Indication: FIBROMYALGIA
     Dosage: DOSE DECREASED TO 50MG 2 PER 1 DAY IN 2009
     Dates: start: 20090101
  3. CYMBALTA [Concomitant]
  4. ATIVAN [Concomitant]

REACTIONS (5)
  - INCREASED APPETITE [None]
  - THINKING ABNORMAL [None]
  - VISION BLURRED [None]
  - WEIGHT INCREASED [None]
  - WHITE BLOOD CELL COUNT DECREASED [None]
